FAERS Safety Report 20699135 (Version 1)
Quarter: 2022Q2

REPORT INFORMATION
  Report Type: Spontaneous
  Country: US (occurrence: US)
  Receive Date: 20220412
  Receipt Date: 20220412
  Transmission Date: 20220721
  Serious: No
  Sender: FDA-Public Use
  Company Number: US-ELI_LILLY_AND_COMPANY-US202202005315

PATIENT
  Sex: Female

DRUGS (1)
  1. OLUMIANT [Suspect]
     Active Substance: BARICITINIB
     Indication: Aicardi-Goutieres syndrome
     Dosage: 6 MG, DAILY
     Route: 048
     Dates: start: 20220210

REACTIONS (2)
  - Off label use [Unknown]
  - Prescribed overdose [Unknown]
